FAERS Safety Report 8276063-2 (Version None)
Quarter: 2012Q2

REPORT INFORMATION
  Report Type: 
  Country: None (occurrence: None)
  Receive Date: 20120405
  Receipt Date: 20120327
  Transmission Date: 20120825
  Serious: Yes (Other)
  Sender: FDA-Public Use
  Company Number: 2012SP017655

PATIENT

DRUGS (4)
  1. BEVACIZUMAB [Suspect]
     Indication: NEOPLASM RECURRENCE
     Dosage: 10 MG/KG;   ;IV
     Route: 042
  2. BEVACIZUMAB [Suspect]
     Indication: GLIOBLASTOMA
     Dosage: 10 MG/KG;   ;IV
     Route: 042
  3. TEMODAL [Suspect]
     Indication: NEOPLASM RECURRENCE
     Dosage: 50 MG/M2; QD;
  4. TEMODAL [Suspect]
     Indication: GLIOBLASTOMA
     Dosage: 50 MG/M2; QD;

REACTIONS (2)
  - PANCREATITIS [None]
  - TOXICITY TO VARIOUS AGENTS [None]
